FAERS Safety Report 7387596-5 (Version None)
Quarter: 2011Q1

REPORT INFORMATION
  Report Type: 
  Country: None (occurrence: None)
  Receive Date: 20110331
  Receipt Date: 20091120
  Transmission Date: 20110831
  Serious: Yes (Other)
  Sender: FDA-Public Use
  Company Number: US-BAYER-200940924NA

PATIENT
  Sex: Male
  Weight: 74.83 kg

DRUGS (16)
  1. VERSED [Concomitant]
     Dosage: 2 MG, UNK
     Route: 042
     Dates: start: 20050722
  2. VANCOMYCIN [Concomitant]
     Dosage: 1 G, UNK
     Route: 042
     Dates: start: 20050726
  3. TRASYLOL [Suspect]
     Indication: CORONARY ARTERY BYPASS
     Dosage: 300 ML, UNK
     Route: 042
     Dates: start: 20050726
  4. CALCIUM CHLORID [CALCIUM CHLORIDE DIHYDRATE] [Concomitant]
     Dosage: 1 MG, UNK
     Route: 042
     Dates: start: 20050726
  5. DILANTIN [Concomitant]
     Dosage: 200 MG MORNING, 300 MG NIGHT
     Route: 048
  6. AMICAR [Concomitant]
     Dosage: RATE TITRATED
     Route: 042
     Dates: start: 20050726
  7. SOLU-MEDROL [Concomitant]
     Dosage: 100 MG, UNK
     Route: 042
     Dates: start: 20050722
  8. LACTATED RINGER'S [Concomitant]
     Dosage: 1500 ML, UNK
     Route: 042
     Dates: start: 20050726
  9. AMBIEN [Concomitant]
     Dosage: 10 MG NIGHTLY, PRN
     Route: 048
  10. ALBUTEROL [Concomitant]
     Dosage: UNK UNK, PRN
     Route: 055
  11. BENADRYL [Concomitant]
     Dosage: 25 MG, UNK
     Route: 042
     Dates: start: 20050722
  12. VERSED [Concomitant]
     Dosage: 2 MG, UNK
     Route: 042
     Dates: start: 20050726
  13. PROTONIX [Concomitant]
     Dosage: 40 MG, TID
     Route: 048
  14. ACETAMINOPHEN [Concomitant]
     Dosage: UNK UNK, PRN
     Route: 048
  15. HEPARIN SODIUM [Concomitant]
     Dosage: 35000 U, UNK
     Route: 042
     Dates: start: 20050726
  16. NORMAL SALINE [Concomitant]
     Dosage: 1000 ML, UNK
     Route: 042
     Dates: start: 20050726

REACTIONS (12)
  - PAIN [None]
  - RENAL INJURY [None]
  - DEPRESSION [None]
  - RENAL FAILURE [None]
  - FEAR [None]
  - MENTAL DISORDER [None]
  - INJURY [None]
  - UNEVALUABLE EVENT [None]
  - DISABILITY [None]
  - MULTI-ORGAN FAILURE [None]
  - ANXIETY [None]
  - ANHEDONIA [None]
